FAERS Safety Report 14536850 (Version 2)
Quarter: 2018Q1

REPORT INFORMATION
  Report Type: Report from Study
  Country: US (occurrence: US)
  Receive Date: 20180215
  Receipt Date: 20180309
  Transmission Date: 20180509
  Serious: Yes (Other)
  Sender: FDA-Public Use
  Company Number: US-JAZZ-2018-US-002944

PATIENT
  Sex: Male

DRUGS (16)
  1. IRON [Concomitant]
     Active Substance: IRON
  2. PREDNISONE. [Concomitant]
     Active Substance: PREDNISONE
     Dosage: UNK
     Dates: end: 201704
  3. XYREM [Suspect]
     Active Substance: SODIUM OXYBATE
     Dosage: 3 G, BID
     Route: 048
     Dates: start: 201707
  4. MOMETASONE FUROATE. [Concomitant]
     Active Substance: MOMETASONE FUROATE
  5. VITAMIN C [Concomitant]
     Active Substance: ASCORBIC ACID
  6. CETIRIZINE HCL [Concomitant]
     Active Substance: CETIRIZINE HYDROCHLORIDE
  7. PAROXETINE CRISTERS [Concomitant]
  8. ADDERALL [Concomitant]
     Active Substance: AMPHETAMINE ASPARTATE\AMPHETAMINE SULFATE\DEXTROAMPHETAMINE SACCHARATE\DEXTROAMPHETAMINE SULFATE
  9. SALMO SALAR OIL [Concomitant]
     Active Substance: ATLANTIC SALMON OIL
  10. XYREM [Suspect]
     Active Substance: SODIUM OXYBATE
     Indication: NARCOLEPSY
     Dosage: 2.25 G, BID
     Route: 048
     Dates: start: 201608, end: 201608
  11. MAGNESIUM [Concomitant]
     Active Substance: MAGNESIUM
  12. PIROXICAM. [Concomitant]
     Active Substance: PIROXICAM
  13. NUVIGIL [Concomitant]
     Active Substance: ARMODAFINIL
  14. XYREM [Suspect]
     Active Substance: SODIUM OXYBATE
     Dosage: DOSE ADJUSTMENTS
     Route: 048
     Dates: start: 201608, end: 201707
  15. IBUPROFEN. [Concomitant]
     Active Substance: IBUPROFEN
  16. MODAFINIL. [Concomitant]
     Active Substance: MODAFINIL

REACTIONS (1)
  - Sinusitis [Recovering/Resolving]
